FAERS Safety Report 10216252 (Version 1)
Quarter: 2014Q2

REPORT INFORMATION
  Report Type: Spontaneous
  Country: US (occurrence: None)
  Receive Date: 20140602
  Receipt Date: 20140602
  Transmission Date: 20141212
  Serious: Yes (Hospitalization, Disabling)
  Sender: FDA-Public Use
  Company Number: 2363579

PATIENT
  Age: 94 Year
  Sex: Female
  Weight: 77.27 kg

DRUGS (9)
  1. CEFEPIME [Suspect]
     Indication: ESCHERICHIA INFECTION
     Dosage: 1 HOUR
     Route: 041
     Dates: start: 20140321, end: 20140512
  2. CEFEPIME [Suspect]
     Indication: MORGANELLA INFECTION
     Dosage: 1 HOUR
     Route: 041
     Dates: start: 20140321, end: 20140512
  3. CEFEPIME [Suspect]
     Indication: ENTEROBACTER INFECTION
     Dosage: 1 HOUR
     Route: 041
     Dates: start: 20140321, end: 20140512
  4. LASIX [Concomitant]
  5. LISINOPRIL [Concomitant]
  6. LEVOTHYROXINE [Concomitant]
  7. IRON [Concomitant]
  8. STOOL SOFTENER [Concomitant]
  9. ALL OTHER THERAPEUTIC PRODUCTS [Concomitant]

REACTIONS (14)
  - Tremor [None]
  - Aphasia [None]
  - Reading disorder [None]
  - Dysgraphia [None]
  - Muscular weakness [None]
  - Decreased appetite [None]
  - Pulmonary oedema [None]
  - Disorientation [None]
  - Renal failure [None]
  - Dyspnoea [None]
  - Hallucination [None]
  - Coma [None]
  - Abnormal behaviour [None]
  - Surgical procedure repeated [None]
